FAERS Safety Report 26135931 (Version 1)
Quarter: 2025Q4

REPORT INFORMATION
  Report Type: Spontaneous
  Country: EU (occurrence: EU)
  Receive Date: 20251209
  Receipt Date: 20251209
  Transmission Date: 20260118
  Serious: Yes (Other)
  Sender: TEVA
  Company Number: None

PATIENT
  Age: 97 Year
  Sex: Female

DRUGS (2)
  1. LACOSAMIDE [Suspect]
     Active Substance: LACOSAMIDE
     Indication: Product used for unknown indication
     Dosage: LACOSAMIDE (8279A)
     Route: 048
     Dates: start: 20250704, end: 20250710
  2. LACOSAMIDE [Suspect]
     Active Substance: LACOSAMIDE
     Indication: Product used for unknown indication
     Dosage: LACOSAMIDE (8279A)
     Route: 048
     Dates: start: 20250704, end: 20250710

REACTIONS (5)
  - Confusional state [Recovered/Resolved]
  - Increased dose administered [Recovered/Resolved]
  - Dizziness [Recovered/Resolved]
  - Vomiting [Recovered/Resolved]
  - Anticonvulsant drug level increased [Recovered/Resolved]

NARRATIVE: CASE EVENT DATE: 20250704
